FAERS Safety Report 9319151 (Version 2)
Quarter: 2014Q1

REPORT INFORMATION
  Report Type: Report from Study
  Country: US (occurrence: US)
  Receive Date: 20130530
  Receipt Date: 20140121
  Transmission Date: 20141002
  Serious: Yes (Hospitalization, Other)
  Sender: FDA-Public Use
  Company Number: US-ELI_LILLY_AND_COMPANY-US201305005918

PATIENT
  Age: 54 Year
  Sex: Female

DRUGS (2)
  1. OLANZAPINE [Suspect]
     Indication: PRODUCT USED FOR UNKNOWN INDICATION
     Dosage: 15 MG, EACH EVENING
  2. OLANZAPINE [Suspect]
     Dosage: 7.5 MG, QD
     Route: 065

REACTIONS (3)
  - Confusional state [Unknown]
  - Convulsion [Unknown]
  - Muscle twitching [Recovered/Resolved]
